FAERS Safety Report 23990246 (Version 1)
Quarter: 2024Q2

REPORT INFORMATION
  Report Type: Spontaneous
  Country: KR (occurrence: KR)
  Receive Date: 20240619
  Receipt Date: 20240619
  Transmission Date: 20240716
  Serious: Yes (Other)
  Sender: FDA-Public Use
  Company Number: KR-002147023-NVSC2024KR125095

PATIENT
  Age: 75 Day
  Sex: Male

DRUGS (5)
  1. TRILEPTAL [Suspect]
     Active Substance: OXCARBAZEPINE
     Indication: Product used for unknown indication
     Dosage: 0.5 ML
     Route: 048
  2. TRILEPTAL [Suspect]
     Active Substance: OXCARBAZEPINE
     Dosage: 0.8 ML, BID
     Route: 048
     Dates: start: 20240105
  3. TRILEPTAL [Suspect]
     Active Substance: OXCARBAZEPINE
     Dosage: 1 ML, BID
     Route: 048
     Dates: start: 20240105
  4. TRILEPTAL [Suspect]
     Active Substance: OXCARBAZEPINE
     Dosage: 1.5 ML, BID
     Route: 048
     Dates: start: 20240129
  5. TRILEPTAL [Suspect]
     Active Substance: OXCARBAZEPINE
     Dosage: 2 ML, BID
     Route: 048
     Dates: start: 20240304

REACTIONS (2)
  - Seizure cluster [Unknown]
  - Generalised tonic-clonic seizure [Unknown]
